FAERS Safety Report 7649934-5 (Version None)
Quarter: 2011Q3

REPORT INFORMATION
  Report Type: 
  Country: None (occurrence: None)
  Receive Date: 20110802
  Receipt Date: 20110720
  Transmission Date: 20111222
  Serious: Yes (Other)
  Sender: FDA-Public Use
  Company Number: US-ASTRAZENECA-2008UW19815

PATIENT
  Age: 45 Year
  Sex: Male
  Weight: 67.6 kg

DRUGS (17)
  1. RISPERDAL [Concomitant]
     Dates: start: 20070101, end: 20080101
  2. THORAZINE [Concomitant]
     Dates: start: 19970101, end: 19980101
  3. SEROQUEL [Suspect]
     Route: 048
     Dates: start: 20030630
  4. SEROQUEL [Suspect]
     Route: 048
     Dates: start: 20060529
  5. SEROQUEL [Suspect]
     Indication: DEPRESSION
     Dosage: 100-400MG
     Route: 048
     Dates: start: 20030417, end: 20060715
  6. GEODON [Concomitant]
     Dates: start: 20060101
  7. MOTRIN [Concomitant]
     Indication: ARTHRALGIA
     Dates: start: 20060525
  8. SEROQUEL [Suspect]
     Indication: SCHIZOPHRENIA, PARANOID TYPE
     Dosage: 100-400MG
     Route: 048
     Dates: start: 20030417, end: 20060715
  9. HALDOL [Concomitant]
     Dates: start: 20050101, end: 20070101
  10. SEROQUEL [Suspect]
     Route: 048
     Dates: start: 20030630
  11. SEROQUEL [Suspect]
     Route: 048
     Dates: start: 20030630
  12. ZYPREXA [Concomitant]
     Dates: start: 20020101
  13. REMERON [Concomitant]
     Dates: start: 20030101, end: 20080101
  14. SEROQUEL [Suspect]
     Indication: HALLUCINATION, AUDITORY
     Dosage: 100-400MG
     Route: 048
     Dates: start: 20030417, end: 20060715
  15. SEROQUEL [Suspect]
     Route: 048
     Dates: start: 20060529
  16. SEROQUEL [Suspect]
     Route: 048
     Dates: start: 20060529
  17. ABILIFY [Concomitant]
     Dates: start: 20060101

REACTIONS (4)
  - SUICIDAL BEHAVIOUR [None]
  - SUICIDE ATTEMPT [None]
  - DIABETES MELLITUS [None]
  - HYPERTENSION [None]
